FAERS Safety Report 4843676-7 (Version None)
Quarter: 2005Q4

REPORT INFORMATION
  Report Type: 
  Country: None (occurrence: None)
  Receive Date: 20051202
  Receipt Date: 20050805
  Transmission Date: 20060501
  Serious: Yes (Hospitalization, Other)
  Sender: FDA-Public Use
  Company Number: 2005UW11669

PATIENT
  Age: 64 Year
  Sex: Male
  Weight: 102.3 kg

DRUGS (4)
  1. CRESTOR [Suspect]
     Indication: BLOOD CHOLESTEROL
     Route: 048
  2. ASPIRIN [Concomitant]
     Route: 048
  3. METFORMIN [Concomitant]
     Route: 048
  4. NAPROXEN [Concomitant]
     Dosage: AS NEEDED
     Route: 048

REACTIONS (1)
  - GLOBAL AMNESIA [None]
